FAERS Safety Report 10471230 (Version 1)
Quarter: 2014Q3

REPORT INFORMATION
  Report Type: Report from Study
  Country: US (occurrence: US)
  Receive Date: 20140923
  Receipt Date: 20140923
  Transmission Date: 20150326
  Serious: No
  Sender: FDA-Public Use
  Company Number: US-ALEXION-A201002258

PATIENT
  Sex: Female

DRUGS (2)
  1. SOLIRIS [Suspect]
     Active Substance: ECULIZUMAB
     Indication: PAROXYSMAL NOCTURNAL HAEMOGLOBINURIA
     Dosage: UNK
     Route: 042
  2. SOLIRIS [Suspect]
     Active Substance: ECULIZUMAB
     Dosage: UNK, SINGLE
     Route: 042
     Dates: start: 20121218, end: 20121218

REACTIONS (9)
  - Haemoglobinuria [Unknown]
  - Abdominal pain [Unknown]
  - Dyspnoea [Unknown]
  - Quality of life decreased [Unknown]
  - Jaundice [Unknown]
  - Fatigue [Unknown]
  - Spondylitis [Not Recovered/Not Resolved]
  - Dysphagia [Unknown]
  - Feeling abnormal [Unknown]
